FAERS Safety Report 4389520-6 (Version None)
Quarter: 2004Q3

REPORT INFORMATION
  Report Type: 
  Country: None (occurrence: None)
  Receive Date: 20040702
  Receipt Date: 20040520
  Transmission Date: 20050211
  Serious: Yes (Other)
  Sender: FDA-Public Use
  Company Number: PHFR2004GB02186

PATIENT
  Age: 63 Year
  Sex: Male

DRUGS (6)
  1. CLOZARIL [Suspect]
     Indication: SCHIZOPHRENIA
     Route: 048
     Dates: start: 20040203
  2. AMISULPRIDE [Concomitant]
     Dosage: 50MG/NOCTE
     Route: 048
  3. VENLAFAXINE [Concomitant]
     Dosage: 150 MG, QD
     Route: 048
  4. ZOPICLONE [Concomitant]
     Indication: INSOMNIA
     Dosage: 7.5MG/NOCTE
     Route: 048
  5. THIAMINE [Concomitant]
     Dosage: 100 MG, QD
     Route: 048
  6. VITAMIN B COMPLEX CAP [Concomitant]
     Dosage: 1 TABLET/DAY
     Route: 048

REACTIONS (4)
  - DRUG LEVEL INCREASED [None]
  - HAEMOGLOBIN DECREASED [None]
  - LYMPHOCYTE COUNT DECREASED [None]
  - TACHYCARDIA [None]
